FAERS Safety Report 7672661-5 (Version None)
Quarter: 2011Q3

REPORT INFORMATION
  Report Type: 
  Country: None (occurrence: None)
  Receive Date: 20110809
  Receipt Date: 20110803
  Transmission Date: 20111222
  Serious: Yes (Hospitalization)
  Sender: FDA-Public Use
  Company Number: US-B.I. PHARMACEUTICALS,INC./RIDGEFIELD-2011-BP-17919BP

PATIENT
  Age: 84 Year
  Sex: Female
  Weight: 67.13 kg

DRUGS (4)
  1. BENICAR HCT [Concomitant]
     Dates: start: 20091123
  2. ZEBETA [Concomitant]
     Dosage: 5 MG
     Dates: start: 20090703
  3. CRESTOR [Concomitant]
     Dosage: 10 MG
     Dates: start: 20090902
  4. PRADAXA [Suspect]
     Indication: ATRIAL FIBRILLATION
     Dosage: 300 MG
     Route: 048
     Dates: start: 20110518, end: 20110615

REACTIONS (1)
  - GASTROINTESTINAL HAEMORRHAGE [None]
